FAERS Safety Report 24966328 (Version 1)
Quarter: 2025Q1

REPORT INFORMATION
  Report Type: Spontaneous
  Country: GB (occurrence: GB)
  Receive Date: 20250213
  Receipt Date: 20250213
  Transmission Date: 20250409
  Serious: Yes (Other)
  Sender: TORRENT PHARMA INC.
  Company Number: None

PATIENT
  Sex: Male
  Weight: 80 kg

DRUGS (1)
  1. LAMOTRIGINE [Suspect]
     Active Substance: LAMOTRIGINE
     Indication: Epilepsy
     Dosage: 50MG ONCE NIGHT
     Route: 065
     Dates: start: 20250103

REACTIONS (2)
  - Nausea [Recovered/Resolved with Sequelae]
  - Illness [Recovering/Resolving]

NARRATIVE: CASE EVENT DATE: 20250110
